FAERS Safety Report 6734360-3 (Version None)
Quarter: 2010Q2

REPORT INFORMATION
  Report Type: 
  Country: None (occurrence: None)
  Receive Date: 20100520
  Receipt Date: 20100511
  Transmission Date: 20101027
  Serious: Yes (Hospitalization)
  Sender: FDA-Public Use
  Company Number: US-BAXTER-2010BH009926

PATIENT
  Age: 65 Year
  Sex: Male

DRUGS (3)
  1. DIANEAL [Suspect]
     Indication: RENAL FAILURE CHRONIC
     Route: 033
     Dates: start: 20090101
  2. DIANEAL [Suspect]
     Route: 033
     Dates: start: 20050415
  3. COUMADIN [Concomitant]
     Indication: ATRIAL FIBRILLATION
     Route: 048

REACTIONS (7)
  - ANGER [None]
  - ANGIOPATHY [None]
  - CARDIAC DISORDER [None]
  - DIABETES MELLITUS [None]
  - HAEMATOMA [None]
  - LIMB INJURY [None]
  - MOOD ALTERED [None]
